FAERS Safety Report 17053303 (Version 1)
Quarter: 2019Q4

REPORT INFORMATION
  Report Type: Spontaneous
  Country: US (occurrence: US)
  Receive Date: 20191120
  Receipt Date: 20191120
  Transmission Date: 20200122
  Serious: No
  Sender: FDA-Public Use
  Company Number: US-NOVOPROD-669271

PATIENT
  Age: 72 Year
  Sex: Female

DRUGS (1)
  1. NOVOLOG MIX 70/30 [Suspect]
     Active Substance: INSULIN ASPART
     Indication: TYPE 2 DIABETES MELLITUS
     Dosage: 110 IU, QD
     Route: 058
     Dates: start: 2018

REACTIONS (5)
  - Agitation [Recovered/Resolved]
  - Irritability [Recovered/Resolved]
  - Blood glucose increased [Recovered/Resolved]
  - Product quality issue [Unknown]
  - Device defective [Unknown]

NARRATIVE: CASE EVENT DATE: 20190529
